FAERS Safety Report 7286155-2 (Version None)
Quarter: 2011Q1

REPORT INFORMATION
  Report Type: 
  Country: None (occurrence: None)
  Receive Date: 20110126
  Receipt Date: 20110120
  Transmission Date: 20110831
  Serious: Yes (Hospitalization, Other)
  Sender: FDA-Public Use
  Company Number: 2010SP028727

PATIENT
  Age: 22 Year
  Sex: Female
  Weight: 97.5234 kg

DRUGS (3)
  1. XANAX [Concomitant]
  2. NUVARING [Suspect]
     Indication: CONTRACEPTION
     Dosage: VAG
     Route: 067
     Dates: start: 20071029
  3. MULTI-VITAMIN [Concomitant]

REACTIONS (28)
  - NAUSEA [None]
  - PAIN IN EXTREMITY [None]
  - HYPERTENSION [None]
  - FATIGUE [None]
  - TRANSIENT ISCHAEMIC ATTACK [None]
  - HEAD INJURY [None]
  - SEASONAL ALLERGY [None]
  - SINUS TACHYCARDIA [None]
  - DYSARTHRIA [None]
  - GAIT DISTURBANCE [None]
  - UNRESPONSIVE TO STIMULI [None]
  - PULMONARY EMBOLISM [None]
  - CHEST PAIN [None]
  - CONVERSION DISORDER [None]
  - APPENDICITIS [None]
  - DEEP VEIN THROMBOSIS [None]
  - CONTUSION [None]
  - VISION BLURRED [None]
  - AMENORRHOEA [None]
  - ANXIETY [None]
  - MUSCULAR WEAKNESS [None]
  - HYPOAESTHESIA [None]
  - FEELING ABNORMAL [None]
  - POLYCYSTIC OVARIES [None]
  - HYPOAESTHESIA ORAL [None]
  - ASTHENIA [None]
  - PARAESTHESIA [None]
  - DIZZINESS [None]
